FAERS Safety Report 4443705-9 (Version None)
Quarter: 2004Q3

REPORT INFORMATION
  Report Type: 
  Country: None (occurrence: None)
  Receive Date: 20040908
  Receipt Date: 20040708
  Transmission Date: 20050211
  Serious: Yes (Hospitalization)
  Sender: FDA-Public Use
  Company Number: PHEH2004US07399

PATIENT
  Age: 69 Year
  Sex: Female

DRUGS (10)
  1. AREDIA [Suspect]
     Indication: OSTEOPOROSIS
     Dosage: UNK, ONCE/SINGLE
     Dates: start: 20040512, end: 20040512
  2. AVAPRO [Concomitant]
  3. PROCARDIA [Concomitant]
  4. ATENOLOL [Concomitant]
  5. ZYRTEC [Concomitant]
  6. URISED [Concomitant]
  7. BETHANECHOL [Concomitant]
  8. NEXIUM [Concomitant]
  9. ENTERIC ASPIRIN [Concomitant]
  10. CALCIUM [Concomitant]

REACTIONS (8)
  - DIZZINESS [None]
  - FUNGAL INFECTION [None]
  - SKIN BURNING SENSATION [None]
  - URINARY RETENTION [None]
  - URINARY TRACT INFECTION [None]
  - VAGINAL MYCOSIS [None]
  - WHITE BLOOD CELL COUNT DECREASED [None]
  - WHITE BLOOD CELL COUNT INCREASED [None]
